FAERS Safety Report 13084547 (Version 1)
Quarter: 2017Q1

REPORT INFORMATION
  Report Type: Spontaneous
  Country: GB (occurrence: GB)
  Receive Date: 20170104
  Receipt Date: 20170104
  Transmission Date: 20170428
  Serious: Yes (Death, Hospitalization)
  Sender: FDA-Public Use
  Company Number: GB-TEVA-725104ACC

PATIENT
  Age: 67 Year
  Sex: Female

DRUGS (2)
  1. PROPANOL [Suspect]
     Active Substance: PROPRANOLOL HYDROCHLORIDE
  2. PREDNISOLONE. [Suspect]
     Active Substance: PREDNISOLONE

REACTIONS (3)
  - Wrong drug administered [Fatal]
  - Drug dispensing error [Fatal]
  - Product packaging confusion [Fatal]

NARRATIVE: CASE EVENT DATE: 201402
